FAERS Safety Report 8909619 (Version 1)
Quarter: 2012Q4

REPORT INFORMATION
  Report Type: Spontaneous
  Country: US (occurrence: None)
  Receive Date: 20121109
  Receipt Date: 20121109
  Transmission Date: 20130627
  Serious: Yes (Other)
  Sender: FDA-Public Use
  Company Number: 2012P1061283

PATIENT
  Age: 42 Year
  Sex: Female
  Weight: 92.99 kg

DRUGS (15)
  1. FENTANYL [Suspect]
     Indication: HERNIATED DISC
     Dosage: 1 patch; q48H;
     Route: 062
     Dates: start: 20120910, end: 20120923
  2. FENTANYL [Suspect]
     Indication: NERVE COMPRESSION
     Dosage: 1 patch; q48H;
     Route: 062
     Dates: start: 20120910, end: 20120923
  3. FENTANYL [Suspect]
     Indication: HERNIATED DISC
  4. FENTANYL [Suspect]
     Indication: NERVE COMPRESSION
  5. FENTANYL [Suspect]
     Indication: HERNIATED DISC
     Dates: start: 20120716, end: 20120909
  6. FENTANYL [Suspect]
     Indication: NERVE COMPRESSION
     Dates: start: 20120716, end: 20120909
  7. FENTANYL [Suspect]
     Indication: HERNIATED DISC
     Dates: start: 20120923, end: 20121009
  8. FENTANYL [Suspect]
     Indication: NERVE COMPRESSION
     Dates: start: 20120923, end: 20121009
  9. OXYCODONE [Concomitant]
  10. FLEXERIL [Concomitant]
  11. LUNESTA [Concomitant]
  12. LIDODERM [Concomitant]
  13. NOVOLOG [Concomitant]
  14. LIPITOR [Concomitant]
  15. UNSPECIFIED MEDICATION [Concomitant]

REACTIONS (9)
  - Fall [None]
  - Ligament rupture [None]
  - Drug effect decreased [None]
  - Tremor [None]
  - Abdominal pain upper [None]
  - Vomiting [None]
  - Feeling hot [None]
  - Hyperhidrosis [None]
  - Drug withdrawal syndrome [None]
